FAERS Safety Report 20261943 (Version 9)
Quarter: 2022Q2

REPORT INFORMATION
  Report Type: Spontaneous
  Country: CA (occurrence: CA)
  Receive Date: 20211231
  Receipt Date: 20220628
  Transmission Date: 20220721
  Serious: Yes (Other)
  Sender: FDA-Public Use
  Company Number: CA-CELLTRION INC.-2020CA033268

PATIENT

DRUGS (15)
  1. INFLECTRA [Suspect]
     Active Substance: INFLIXIMAB-DYYB
     Indication: Crohn^s disease
     Dosage: 275 MG, EVERY 8 WEEKS
     Route: 058
     Dates: start: 20201020
  2. INFLECTRA [Suspect]
     Active Substance: INFLIXIMAB-DYYB
     Dosage: 275 MG, EVERY 8 WEEKS
     Route: 042
     Dates: start: 20201020
  3. INFLECTRA [Suspect]
     Active Substance: INFLIXIMAB-DYYB
     Dosage: 275 MG, EVERY 8 WEEKS
     Route: 058
     Dates: start: 20201104
  4. INFLECTRA [Suspect]
     Active Substance: INFLIXIMAB-DYYB
     Dosage: 275 MG, EVERY 8 WEEKS
     Route: 058
     Dates: start: 20201203
  5. INFLECTRA [Suspect]
     Active Substance: INFLIXIMAB-DYYB
     Dosage: 300 MG, EVERY 8 WEEKS
     Route: 058
     Dates: start: 20210326
  6. INFLECTRA [Suspect]
     Active Substance: INFLIXIMAB-DYYB
     Dosage: 275 MG EVERY 8 WEEKS
     Route: 058
     Dates: start: 20210716
  7. INFLECTRA [Suspect]
     Active Substance: INFLIXIMAB-DYYB
     Dosage: 275 MG, EVERY 8 WEEKS
     Route: 058
     Dates: start: 20210909
  8. INFLECTRA [Suspect]
     Active Substance: INFLIXIMAB-DYYB
     Dosage: 275 MG, EVERY 8 WEEKS
     Route: 042
     Dates: start: 20211104
  9. INFLECTRA [Suspect]
     Active Substance: INFLIXIMAB-DYYB
     Dosage: 275 MG, EVERY 8 WEEKS
     Route: 042
     Dates: start: 20211104
  10. INFLECTRA [Suspect]
     Active Substance: INFLIXIMAB-DYYB
     Dosage: 275 MG, EVERY 8 WEEKS
     Route: 042
     Dates: start: 20211230
  11. INFLECTRA [Suspect]
     Active Substance: INFLIXIMAB-DYYB
     Dosage: 275 MG, EVERY 8 WEEKS
     Route: 042
     Dates: start: 20220224
  12. INFLECTRA [Suspect]
     Active Substance: INFLIXIMAB-DYYB
     Dosage: 275 MG, EVERY 4 WEEKS
     Route: 042
     Dates: start: 20220421
  13. INFLECTRA [Suspect]
     Active Substance: INFLIXIMAB-DYYB
     Dosage: 275 MG, EVERY 4 WEEKS
     Route: 042
     Dates: start: 20220519
  14. INFLECTRA [Suspect]
     Active Substance: INFLIXIMAB-DYYB
     Dosage: 275 MG, EVERY 4 WEEKS
     Route: 042
     Dates: start: 20220616
  15. ENTYVIO [Concomitant]
     Active Substance: VEDOLIZUMAB
     Dosage: UNK
     Dates: start: 20201001

REACTIONS (14)
  - Anal abscess [Unknown]
  - Faecal calprotectin increased [Unknown]
  - Drug level below therapeutic [Unknown]
  - Anal fissure [Unknown]
  - Anal fistula [Unknown]
  - Exposure to SARS-CoV-2 [Unknown]
  - Fistula [Unknown]
  - Weight increased [Unknown]
  - Inflammation [Unknown]
  - Condition aggravated [Recovered/Resolved]
  - Inappropriate schedule of product administration [Unknown]
  - Off label use [Unknown]
  - Off label use [Unknown]
  - Off label use [Unknown]

NARRATIVE: CASE EVENT DATE: 20210101
